FAERS Safety Report 8569217-9 (Version None)
Quarter: 2012Q3

REPORT INFORMATION
  Report Type: 
  Country: None (occurrence: None)
  Receive Date: 20120803
  Receipt Date: 20120618
  Transmission Date: 20120928
  Serious: No
  Sender: FDA-Public Use
  Company Number: US-ABBOTT-12P-163-0947281-00

PATIENT
  Sex: Male
  Weight: 108.96 kg

DRUGS (4)
  1. ZIAC [Concomitant]
     Indication: HYPERTENSION
  2. NIASPAN [Suspect]
     Indication: LOW DENSITY LIPOPROTEIN INCREASED
  3. ASPIRIN [Concomitant]
     Indication: PRODUCT USED FOR UNKNOWN INDICATION
     Dates: start: 20120501
  4. NIASPAN [Suspect]
     Indication: HIGH DENSITY LIPOPROTEIN DECREASED
     Dates: start: 20120515, end: 20120523

REACTIONS (3)
  - RASH PRURITIC [None]
  - FLUSHING [None]
  - DERMATITIS CONTACT [None]
